FAERS Safety Report 9087681 (Version 2)
Quarter: 2013Q1

REPORT INFORMATION
  Report Type: Spontaneous
  Country: US (occurrence: US)
  Receive Date: 20130201
  Receipt Date: 20130307
  Transmission Date: 20140127
  Serious: Yes (Hospitalization)
  Sender: FDA-Public Use
  Company Number: US-UCBSA-076046

PATIENT
  Age: 53 Year
  Sex: Female
  Weight: 147.41 kg

DRUGS (3)
  1. CIMZIA [Suspect]
     Indication: CROHN^S DISEASE
     Dates: start: 20101204
  2. ATENOLOL [Concomitant]
     Indication: HYPERTENSION
  3. FLOVENT [Concomitant]
     Indication: ASTHMA
     Dosage: DOSE: TT PUFFS

REACTIONS (2)
  - Overdose [Recovered/Resolved]
  - Adjustment disorder [Recovered/Resolved]
